FAERS Safety Report 10267841 (Version 1)
Quarter: 2014Q2

REPORT INFORMATION
  Report Type: Spontaneous
  Country: US (occurrence: US)
  Receive Date: 20140630
  Receipt Date: 20140630
  Transmission Date: 20141212
  Serious: No
  Sender: FDA-Public Use
  Company Number: US-GLAXOSMITHKLINE-A1068312A

PATIENT
  Age: 72 Year
  Sex: Female
  Weight: 47.3 kg

DRUGS (2)
  1. RANITIDINE [Suspect]
     Indication: LOCAL SWELLING
     Dosage: 150MG TWICE PER DAY
     Route: 065
  2. HYDROCODONE [Concomitant]
     Indication: PAIN
     Dosage: 10MG SIX TIMES PER DAY

REACTIONS (2)
  - Off label use [Unknown]
  - Underdose [Unknown]
